FAERS Safety Report 8960145 (Version 1)
Quarter: 2012Q4

REPORT INFORMATION
  Report Type: 
  Country: JP (occurrence: JP)
  Receive Date: 20121211
  Receipt Date: 20121211
  Transmission Date: 20130627
  Serious: Yes (Hospitalization, Other)
  Sender: FDA-Public Use
  Company Number: JP-PFIZER INC-2012277207

PATIENT
  Age: 33 Year
  Sex: Female
  Weight: 79.4 kg

DRUGS (11)
  1. OLMETEC [Suspect]
     Indication: GESTATIONAL HYPERTENSION
     Dosage: 20 mg, 2x/day
     Route: 050
     Dates: start: 20111017, end: 20111226
  2. CARDENALIN [Suspect]
     Indication: GESTATIONAL HYPERTENSION
     Dosage: 2 mg, 2x/day
     Route: 050
     Dates: start: 20111108, end: 20111226
  3. CALBLOCK [Suspect]
     Indication: GESTATIONAL HYPERTENSION
     Dosage: 16 mg, 1x/day
     Route: 050
     Dates: start: 20111017, end: 20111226
  4. AVAPRO [Suspect]
     Indication: GESTATIONAL HYPERTENSION
     Dosage: 100 mg, 1x/day
     Route: 050
     Dates: start: 20111023, end: 20111226
  5. TAKEPRON OD [Concomitant]
     Dosage: 15 mg, 1x/day
     Route: 050
     Dates: start: 20111017, end: 20111226
  6. DIGOXIN [Concomitant]
     Indication: GESTATIONAL HYPERTENSION
     Dosage: 0.25 mg, 1x/day
     Route: 050
     Dates: start: 20111017, end: 20111226
  7. DIGOXIN [Concomitant]
     Indication: SUBARACHNOID HAEMORRHAGE
  8. LASIX [Concomitant]
     Indication: GESTATIONAL HYPERTENSION
     Dosage: 40 mg, 1x/day
     Route: 050
     Dates: start: 20111017, end: 20111226
  9. LASIX [Concomitant]
     Indication: SUBARACHNOID HAEMORRHAGE
  10. ALEVIATIN [Concomitant]
     Indication: SUBARACHNOID HAEMORRHAGE
     Dosage: 150 mg, 2x/day
     Route: 050
     Dates: start: 20111017, end: 20111226
  11. ULCERLMIN [Concomitant]
     Dosage: 1 g, 3x/day
     Route: 050
     Dates: start: 20111017, end: 20111226

REACTIONS (4)
  - Oxygen saturation decreased [Recovered/Resolved]
  - Tachycardia [Recovered/Resolved]
  - Procedural hypotension [Recovered/Resolved]
  - Procedural hypotension [Recovered/Resolved]
